FAERS Safety Report 13968419 (Version 1)
Quarter: 2017Q3

REPORT INFORMATION
  Report Type: Report from Study
  Country: BR (occurrence: BR)
  Receive Date: 20170914
  Receipt Date: 20170914
  Transmission Date: 20171128
  Serious: Yes (Other)
  Sender: FDA-Public Use
  Company Number: BR-JNJFOC-20170910691

PATIENT
  Sex: Male

DRUGS (1)
  1. INFLIXIMAB, RECOMBINANT [Suspect]
     Active Substance: INFLIXIMAB
     Indication: PSORIASIS
     Route: 042
     Dates: end: 2017

REACTIONS (4)
  - Respiratory arrest [Recovered/Resolved]
  - Gastric ulcer [Unknown]
  - Infusion related reaction [Recovered/Resolved]
  - Fibromyalgia [Unknown]
